FAERS Safety Report 5133268-7 (Version None)
Quarter: 2006Q4

REPORT INFORMATION
  Report Type: 
  Country: None (occurrence: None)
  Receive Date: 20060830
  Receipt Date: 20060613
  Transmission Date: 20070319
  Serious: Yes (Death)
  Sender: FDA-Public Use
  Company Number: T200600647

PATIENT
  Age: 23 Year
  Sex: Male
  Weight: 94.3 kg

DRUGS (4)
  1. MORPHINE SULFATE ER)MORPHINE SULFATE) TABLET, 60 MG [Suspect]
     Indication: NEURALGIA
     Dosage: 120 MG (2 TABLETS), EVERY 4 HRS
     Dates: start: 20060127
  2. HYDROMORPHONE HCL [Suspect]
     Indication: NEURALGIA
     Dosage: 1-2 TABS Q 4 HRS, PM
  3. FENTANYL [Suspect]
     Indication: NEURALGIA
     Dosage: SEE IMAGE
     Route: 062
     Dates: start: 20051214
  4. FENTANYL [Suspect]
     Indication: NEURALGIA
     Dosage: SEE IMAGE
     Route: 062
     Dates: start: 20051219

REACTIONS (1)
  - OVERDOSE [None]
